FAERS Safety Report 19134980 (Version 10)
Quarter: 2024Q4

REPORT INFORMATION
  Report Type: Spontaneous
  Country: US (occurrence: US)
  Receive Date: 20210414
  Receipt Date: 20241126
  Transmission Date: 20250115
  Serious: Yes (Other)
  Sender: PFIZER
  Company Number: US-PFIZER INC-2021381884

PATIENT
  Age: 77 Year
  Sex: Female

DRUGS (1)
  1. XELJANZ XR [Suspect]
     Active Substance: TOFACITINIB CITRATE
     Dosage: 11 MG, 1X/DAY
     Route: 048

REACTIONS (11)
  - Dementia Alzheimer^s type [Unknown]
  - Cerebral disorder [Unknown]
  - Oropharyngeal discomfort [Unknown]
  - Alopecia [Unknown]
  - Nervousness [Unknown]
  - Tremor [Unknown]
  - Hypoacusis [Unknown]
  - Headache [Unknown]
  - Brain fog [Recovering/Resolving]
  - Memory impairment [Recovering/Resolving]
  - Cerebral disorder [Recovering/Resolving]
